FAERS Safety Report 7803326 (Version 6)
Quarter: 2013Q1

REPORT INFORMATION
  Report Type: Spontaneous
  Country: US (occurrence: US)
  Receive Date: 20110208
  Receipt Date: 20130102
  Transmission Date: 20140127
  Serious: Yes (Hospitalization)
  Sender: FDA-Public Use
  Company Number: US-BAYER-2011-011850

PATIENT
  Age: 40 Year
  Sex: Female
  Weight: 54.42 kg

DRUGS (12)
  1. YASMIN [Suspect]
     Dosage: UNK
     Dates: start: 2003, end: 20090316
  2. LIPITOR [Concomitant]
  3. LEVOTHYROXINE [Concomitant]
     Indication: HYPOTHYROIDISM
     Dosage: UNK
     Dates: start: 2003
  4. EFFEXOR [Concomitant]
     Indication: ANTIDEPRESSANT THERAPY
     Dosage: 150 MG, QD
     Route: 048
     Dates: start: 2005, end: 2009
  5. EFFEXOR [Concomitant]
     Indication: ANXIETY
  6. ASPIRIN [Concomitant]
     Dosage: UNK
     Dates: start: 2009
  7. ZOLOFT [Concomitant]
     Indication: ANTIDEPRESSANT THERAPY
     Dosage: UNK
     Dates: start: 2009
  8. ZOLOFT [Concomitant]
     Indication: ANXIETY
  9. LEVOXYL [Concomitant]
     Indication: HYPOTHYROIDISM
     Route: 048
  10. LEVAQUIN [Concomitant]
     Indication: INFECTION
     Dosage: 250 MG, QD
     Route: 048
  11. ALLEGRA [Concomitant]
     Indication: SEASONAL ALLERGY
     Route: 048
  12. SYNTHROID [Concomitant]

REACTIONS (3)
  - Myocardial infarction [None]
  - Chest pain [None]
  - Acute myocardial infarction [None]
